FAERS Safety Report 9462525 (Version 1)
Quarter: 2013Q3

REPORT INFORMATION
  Report Type: Spontaneous
  Country: US (occurrence: None)
  Receive Date: 20130815
  Receipt Date: 20130815
  Transmission Date: 20140515
  Serious: Yes (Hospitalization)
  Sender: FDA-Public Use
  Company Number: None

PATIENT
  Age: 49 Year
  Sex: Male

DRUGS (2)
  1. SUMATRIPTAN [Suspect]
     Indication: MIGRAINE
     Route: 048
     Dates: start: 20110617, end: 20110617
  2. CITALOPRAM [Suspect]
     Route: 048

REACTIONS (12)
  - Ataxia [None]
  - Fatigue [None]
  - Coordination abnormal [None]
  - Post concussion syndrome [None]
  - Fall [None]
  - Convulsion [None]
  - Dyspnoea [None]
  - Serotonin syndrome [None]
  - Headache [None]
  - No therapeutic response [None]
  - Drug interaction [None]
  - Oxygen saturation decreased [None]
